FAERS Safety Report 24958950 (Version 1)
Quarter: 2025Q1

REPORT INFORMATION
  Report Type: Other
  Country: TW (occurrence: TW)
  Receive Date: 20250212
  Receipt Date: 20250212
  Transmission Date: 20250408
  Serious: Yes (Hospitalization, Other)
  Sender: ESJAY PHARMA
  Company Number: TW-ESJAY PHARMA-000139

PATIENT
  Age: 67 Year
  Sex: Male

DRUGS (14)
  1. RISPERIDONE [Suspect]
     Active Substance: RISPERIDONE
     Indication: Agitation
  2. BIPERIDEN [Concomitant]
     Active Substance: BIPERIDEN
     Indication: Product used for unknown indication
  3. QUETIAPINE [Concomitant]
     Active Substance: QUETIAPINE
     Indication: Agitation
  4. PAROXETINE [Concomitant]
     Active Substance: PAROXETINE
     Indication: Depressed mood
  5. AMANTADINE [Concomitant]
     Active Substance: AMANTADINE
     Indication: Muscle rigidity
  6. NALTREXONE [Concomitant]
     Active Substance: NALTREXONE
     Indication: Product used for unknown indication
  7. LORAZEPAM [Concomitant]
     Active Substance: LORAZEPAM
     Indication: Alcohol withdrawal syndrome
  8. PAROXETINE [Concomitant]
     Active Substance: PAROXETINE
     Indication: Depressed mood
  9. QUETIAPINE [Concomitant]
     Active Substance: QUETIAPINE
     Indication: Behaviour disorder
  10. QUETIAPINE [Concomitant]
     Active Substance: QUETIAPINE
     Indication: Agitation
  11. RISPERIDONE [Suspect]
     Active Substance: RISPERIDONE
     Indication: Jealous delusion
  12. RISPERIDONE [Suspect]
     Active Substance: RISPERIDONE
     Indication: Agitation
  13. RISPERIDONE [Suspect]
     Active Substance: RISPERIDONE
     Indication: Agitation
  14. RISPERIDONE [Suspect]
     Active Substance: RISPERIDONE
     Indication: Agitation

REACTIONS (2)
  - Serotonin syndrome [Recovering/Resolving]
  - Drug interaction [Unknown]
